FAERS Safety Report 5537516-0 (Version None)
Quarter: 2007Q4

REPORT INFORMATION
  Report Type: 
  Country: None (occurrence: None)
  Receive Date: 20071207
  Receipt Date: 20071129
  Transmission Date: 20080405
  Serious: Yes (Other)
  Sender: FDA-Public Use
  Company Number: US-ELI_LILLY_AND_COMPANY-US200710007259

PATIENT
  Sex: Male
  Weight: 156.1 kg

DRUGS (10)
  1. BYETTA [Suspect]
     Dosage: 5 UG, 2/D
     Route: 058
     Dates: start: 20070701, end: 20070801
  2. BYETTA [Suspect]
     Dosage: 10 UG, 2/D
     Route: 058
     Dates: start: 20070801, end: 20071101
  3. METFORMIN HCL [Concomitant]
     Indication: DIABETES MELLITUS
     Dosage: 500 MG, 4/D
  4. GEMFIBROZIL [Concomitant]
     Indication: HIGH DENSITY LIPOPROTEIN DECREASED
     Dosage: 600 MG, 2/D
     Route: 048
  5. PRAZOSIN HCL [Concomitant]
     Indication: BLOOD PRESSURE
     Dosage: 5 UG, 2/D
     Route: 048
  6. LISINOPRIL AND HYDROCHLOROTHIAZIDE [Concomitant]
     Indication: BLOOD PRESSURE
     Dosage: 1 D/F, 2/D
     Route: 048
  7. METOPROLOL [Concomitant]
     Indication: BLOOD PRESSURE
     Dosage: UNK, UNKNOWN
     Route: 048
  8. PAXIL [Concomitant]
     Dosage: 1 D/F, DAILY (1/D)
  9. ALLOPURINOL [Concomitant]
     Indication: GOUT
     Dosage: 300 MG, DAILY (1/D)
     Route: 048
  10. PRAVASTATIN [Concomitant]
     Indication: LOW DENSITY LIPOPROTEIN INCREASED
     Dosage: UNK, UNKNOWN
     Route: 048

REACTIONS (11)
  - ABDOMINAL INJURY [None]
  - ABDOMINAL PAIN UPPER [None]
  - ABNORMAL FAECES [None]
  - BLOOD GLUCOSE INCREASED [None]
  - BLOOD PRESSURE DECREASED [None]
  - DIARRHOEA [None]
  - DIZZINESS [None]
  - FALL [None]
  - NAUSEA [None]
  - SYNCOPE VASOVAGAL [None]
  - WEIGHT DECREASED [None]
